FAERS Safety Report 9799958 (Version 1)
Quarter: 2014Q1

REPORT INFORMATION
  Report Type: Spontaneous
  Country: DE (occurrence: DE)
  Receive Date: 20140106
  Receipt Date: 20140106
  Transmission Date: 20141002
  Serious: Yes (Other)
  Sender: FDA-Public Use
  Company Number: DE-PFIZER INC-2014001577

PATIENT
  Sex: Female

DRUGS (1)
  1. SORTIS [Suspect]

REACTIONS (1)
  - Paralysis [Unknown]
